FAERS Safety Report 19030019 (Version 5)
Quarter: 2021Q2

REPORT INFORMATION
  Report Type: Report from Study
  Country: CO (occurrence: CO)
  Receive Date: 20210319
  Receipt Date: 20210531
  Transmission Date: 20210717
  Serious: Yes (Death, Hospitalization, Disabling, Other)
  Sender: FDA-Public Use
  Company Number: CO-AUROBINDO-AUR-APL-2021-011318

PATIENT
  Age: 68 Year
  Sex: Female

DRUGS (3)
  1. FOLOTYN [Suspect]
     Active Substance: PRALATREXATE
     Indication: PERIPHERAL T-CELL LYMPHOMA UNSPECIFIED
     Dosage: 54 MILLIGRAM, DAILY
     Route: 042
     Dates: start: 20210106, end: 20210302
  2. FOLOTYN [Suspect]
     Active Substance: PRALATREXATE
     Indication: ANAPLASTIC LARGE-CELL LYMPHOMA
     Dosage: 28 MILLIGRAM UNTIL THE LAST EVENT.
     Route: 042
     Dates: start: 20210106, end: 20210414
  3. FOLOTYN [Suspect]
     Active Substance: PRALATREXATE
     Dosage: UNK
     Route: 042
     Dates: end: 20210525

REACTIONS (8)
  - Osteomyelitis [Unknown]
  - Fall [Recovering/Resolving]
  - Infection [Unknown]
  - Cardio-respiratory arrest [Fatal]
  - Femur fracture [Recovering/Resolving]
  - Localised infection [Unknown]
  - Weight decreased [Unknown]
  - Wound [Unknown]

NARRATIVE: CASE EVENT DATE: 20210306
